FAERS Safety Report 4538523-7 (Version None)
Quarter: 2004Q4

REPORT INFORMATION
  Report Type: 
  Country: None (occurrence: None)
  Receive Date: 20041221
  Receipt Date: 20041130
  Transmission Date: 20050328
  Serious: Yes (Hospitalization)
  Sender: FDA-Public Use
  Company Number: ALMO2004045

PATIENT
  Age: 51 Year
  Sex: Female

DRUGS (1)
  1. ALMOGRAN [Suspect]
     Indication: MIGRAINE
     Dosage: 12.5 MG

REACTIONS (2)
  - FALL [None]
  - VERTIGO [None]
